FAERS Safety Report 9015787 (Version 2)
Quarter: 2013Q1

REPORT INFORMATION
  Report Type: Report from Study
  Country: AU (occurrence: AU)
  Receive Date: 20130116
  Receipt Date: 20130222
  Transmission Date: 20140127
  Serious: Yes (Life-Threatening, Hospitalization)
  Sender: FDA-Public Use
  Company Number: AU-CELGENEUS-008-50794-12121124

PATIENT
  Age: 71 Year
  Sex: Male

DRUGS (8)
  1. VIDAZA [Suspect]
     Indication: MYELODYSPLASTIC SYNDROME
     Dosage: 130 MILLIGRAM
     Route: 050
     Dates: start: 20121112, end: 20121120
  2. VIDAZA [Suspect]
     Route: 058
     Dates: start: 20130107, end: 20130108
  3. VIDAZA [Suspect]
     Route: 065
     Dates: start: 20121015
  4. LENALIDOMIDE [Suspect]
     Indication: MYELODYSPLASTIC SYNDROME
     Dosage: 5 MILLIGRAM
     Route: 048
     Dates: start: 20130107, end: 20130108
  5. PREDNISOLONE [Concomitant]
     Indication: PRODUCT USED FOR UNKNOWN INDICATION
     Route: 065
  6. FILGRASTIM [Concomitant]
     Indication: PRODUCT USED FOR UNKNOWN INDICATION
     Dosage: 480 MILLIGRAM
     Route: 065
     Dates: start: 20121106
  7. FILGRASTIM [Concomitant]
     Dosage: 480 MILLIGRAM
     Route: 065
     Dates: start: 20121107
  8. FILGRASTIM [Concomitant]
     Dosage: 480 MILLIGRAM
     Route: 065
     Dates: start: 20121204, end: 20121206

REACTIONS (2)
  - Sepsis [Recovered/Resolved]
  - Sepsis [Recovered/Resolved with Sequelae]
